FAERS Safety Report 4385551-0 (Version None)
Quarter: 2004Q2

REPORT INFORMATION
  Report Type: 
  Country: None (occurrence: None)
  Receive Date: 20040622
  Receipt Date: 20040611
  Transmission Date: 20050107
  Serious: Yes (Life-Threatening)
  Sender: FDA-Public Use
  Company Number: D01200402125

PATIENT
  Age: 70 Year
  Sex: Male

DRUGS (8)
  1. FONDAPARINUX [Suspect]
     Dosage: 2.5 MG, SUBCUTANEOUS
     Route: 058
     Dates: start: 20040603
  2. ASCAL (ACETYLSALICYLATE CALCIUIM) [Concomitant]
  3. PLAVIX [Concomitant]
  4. ENOXAPARIN SODIUM [Concomitant]
  5. SELOKEEN (METOPROLOL TARTRATE) [Concomitant]
  6. NITROGLYCERIN [Concomitant]
  7. AGGRASTAT [Concomitant]
  8. LISINIOPRIL [Concomitant]

REACTIONS (1)
  - CATHETER RELATED COMPLICATION [None]
